FAERS Safety Report 4903409-2 (Version None)
Quarter: 2006Q1

REPORT INFORMATION
  Report Type: 
  Country: None (occurrence: None)
  Receive Date: 20060203
  Receipt Date: 20060124
  Transmission Date: 20060701
  Serious: Yes (Hospitalization, Other)
  Sender: FDA-Public Use
  Company Number: 2005123371

PATIENT
  Age: 91 Year
  Sex: Male
  Weight: 67 kg

DRUGS (5)
  1. FELDENE [Suspect]
     Indication: ILL-DEFINED DISORDER
     Dosage: ORAL
     Route: 048
     Dates: end: 20050313
  2. ALDACTAZIDE [Suspect]
     Indication: ILL-DEFINED DISORDER
     Dosage: 1 IN 1 D, ORAL
     Route: 048
     Dates: start: 20050312, end: 20050313
  3. ADVIL [Suspect]
     Indication: ILL-DEFINED DISORDER
     Dosage: 3 IN 1 D, ORAL
     Route: 048
     Dates: start: 20050312, end: 20050313
  4. ACETAMINOPHEN W/ PROPOXYPHENE HCL [Concomitant]
  5. LANSOPRAZOLE [Concomitant]

REACTIONS (6)
  - ACIDOSIS [None]
  - DEHYDRATION [None]
  - DRUG INTERACTION [None]
  - ESCHERICHIA INFECTION [None]
  - KIDNEY INFECTION [None]
  - RENAL FAILURE ACUTE [None]
